FAERS Safety Report 6763958-1 (Version None)
Quarter: 2010Q2

REPORT INFORMATION
  Report Type: 
  Country: None (occurrence: None)
  Receive Date: 20100610
  Receipt Date: 20100602
  Transmission Date: 20101027
  Serious: Yes (Death, Hospitalization, Other)
  Sender: FDA-Public Use
  Company Number: US-TEVA-236552USA

PATIENT
  Sex: Female

DRUGS (4)
  1. IFOSFAMIDE INJECTION, 50 MG/ML, PACKAGED IN 1 GR/20 ML AND 3 GR/60 ML [Suspect]
     Indication: EWING'S SARCOMA
     Route: 042
     Dates: start: 20100211, end: 20100215
  2. SPRYCEL [Suspect]
     Indication: EWING'S SARCOMA
     Route: 048
     Dates: start: 20100216, end: 20100303
  3. CARBOPLATIN [Suspect]
     Indication: EWING'S SARCOMA
     Route: 042
  4. ETOPOSIDE [Suspect]
     Indication: EWING'S SARCOMA
     Route: 042

REACTIONS (3)
  - CEREBRAL INFARCTION [None]
  - NEUTROPENIA [None]
  - ZYGOMYCOSIS [None]
